FAERS Safety Report 8091952-X (Version None)
Quarter: 2012Q1

REPORT INFORMATION
  Report Type: 
  Country: None (occurrence: None)
  Receive Date: 20120129
  Receipt Date: 20111220
  Transmission Date: 20120608
  Serious: No
  Sender: FDA-Public Use
  Company Number: US-ABBOTT-11P-163-0867824-00

PATIENT
  Age: 31 Year
  Sex: Male

DRUGS (9)
  1. VITAMIN E [Concomitant]
     Indication: PRODUCT USED FOR UNKNOWN INDICATION
  2. BLOOD PRESSURE MEDICATION [Concomitant]
     Indication: BLOOD PRESSURE
     Dosage: NOT ON A REGULAR BASIS
  3. IBUPROFEN [Concomitant]
     Indication: PRODUCT USED FOR UNKNOWN INDICATION
  4. HUMIRA [Suspect]
     Dates: start: 20111024
  5. MULTI-VITAMIN [Concomitant]
     Indication: PRODUCT USED FOR UNKNOWN INDICATION
  6. ALLEGRA-D 12 HOUR [Concomitant]
     Indication: PRODUCT USED FOR UNKNOWN INDICATION
  7. HUMIRA [Suspect]
     Indication: ANKYLOSING SPONDYLITIS
     Dates: start: 20110908, end: 20111020
  8. VITAMIN D [Concomitant]
     Indication: PRODUCT USED FOR UNKNOWN INDICATION
  9. VICODIN [Concomitant]
     Indication: PRODUCT USED FOR UNKNOWN INDICATION

REACTIONS (12)
  - MALAISE [None]
  - INJECTION SITE PAIN [None]
  - RESPIRATORY TRACT CONGESTION [None]
  - PAIN [None]
  - PYREXIA [None]
  - SINUS CONGESTION [None]
  - HEADACHE [None]
  - INJECTION SITE PRURITUS [None]
  - NASOPHARYNGITIS [None]
  - FATIGUE [None]
  - OROPHARYNGEAL PAIN [None]
  - PSORIASIS [None]
